FAERS Safety Report 17683860 (Version 1)
Quarter: 2020Q2

REPORT INFORMATION
  Report Type: Spontaneous
  Country: US (occurrence: US)
  Receive Date: 20200420
  Receipt Date: 20200420
  Transmission Date: 20200714
  Serious: No
  Sender: FDA-Public Use
  Company Number: US-009507513-2004USA005063

PATIENT
  Sex: Male

DRUGS (2)
  1. ISOPRINOSINE [Concomitant]
     Active Substance: INOSINE PRANOBEX
     Indication: SUBACUTE SCLEROSING PANENCEPHALITIS
     Dosage: UNK, QD
     Route: 048
  2. INTRON A [Suspect]
     Active Substance: INTERFERON ALFA-2B
     Indication: SUBACUTE SCLEROSING PANENCEPHALITIS
     Dosage: UNK, EVERY TWO WEEKS
     Route: 037

REACTIONS (1)
  - Off label use [Unknown]
